FAERS Safety Report 6618418-5 (Version None)
Quarter: 2010Q1

REPORT INFORMATION
  Report Type: 
  Country: None (occurrence: None)
  Receive Date: 20100308
  Receipt Date: 20100301
  Transmission Date: 20100710
  Serious: Yes (Other)
  Sender: FDA-Public Use
  Company Number: B0637643A

PATIENT

DRUGS (3)
  1. CLAVAMOX [Suspect]
     Indication: DRUG USE FOR UNKNOWN INDICATION
     Route: 048
  2. ONON [Concomitant]
     Route: 048
  3. ZESULAN [Concomitant]
     Route: 048

REACTIONS (3)
  - ASTHMA [None]
  - COUGH [None]
  - RHINORRHOEA [None]
